FAERS Safety Report 6772524-3 (Version None)
Quarter: 2010Q2

REPORT INFORMATION
  Report Type: 
  Country: None (occurrence: None)
  Receive Date: 20100616
  Receipt Date: 20091130
  Transmission Date: 20101027
  Serious: No
  Sender: FDA-Public Use
  Company Number: US-ASTRAZENECA-2009SE18672

PATIENT
  Age: 73 Year
  Sex: Male

DRUGS (2)
  1. PULMICORT [Suspect]
     Dosage: 180 MCG FOUR PUFFS THREEN TIMES A DAY
     Route: 055
     Dates: start: 20090818
  2. PULMICORT [Suspect]
     Route: 055

REACTIONS (3)
  - ACCIDENTAL OVERDOSE [None]
  - DYSPHONIA [None]
  - THERAPEUTIC RESPONSE UNEXPECTED [None]
